FAERS Safety Report 9536168 (Version 1)
Quarter: 2013Q2

REPORT INFORMATION
  Report Type: Spontaneous
  Country: US (occurrence: None)
  Receive Date: 20130507
  Receipt Date: 20130507
  Transmission Date: 20140414
  Serious: Yes (Other)
  Sender: FDA-Public Use
  Company Number: PHEH2012US025294

PATIENT
  Age: 44 Year
  Sex: Female
  Weight: 66 kg

DRUGS (5)
  1. AFINITOR (RAD) UNKNOWN [Suspect]
     Indication: BREAST CANCER METASTATIC
     Route: 048
     Dates: start: 201207, end: 20121204
  2. AROMASIN (EXEMESTANE) [Concomitant]
  3. SYNTHROID (LEVOTHYROXINE SODIUM) [Concomitant]
  4. LISINOPRIL (LISINOPRIL) [Concomitant]
  5. CALCIUM + VIT D (CALCIUM CARBONATE, VITAMIN D NOS) [Concomitant]

REACTIONS (4)
  - Pneumonitis [None]
  - Pulmonary toxicity [None]
  - Dyspnoea [None]
  - Pyrexia [None]
